FAERS Safety Report 16546293 (Version 1)
Quarter: 2019Q3

REPORT INFORMATION
  Report Type: Spontaneous
  Country: US (occurrence: US)
  Receive Date: 20190709
  Receipt Date: 20190709
  Transmission Date: 20191004
  Serious: No
  Sender: FDA-Public Use
  Company Number: US-ASTELLAS-2018US046376

PATIENT
  Sex: Female

DRUGS (3)
  1. MYRBETRIQ [Suspect]
     Active Substance: MIRABEGRON
     Indication: URINARY TRACT INFECTION
  2. MYRBETRIQ [Suspect]
     Active Substance: MIRABEGRON
     Indication: BLADDER PAIN
     Route: 065
  3. MYRBETRIQ [Suspect]
     Active Substance: MIRABEGRON
     Indication: HYPERTONIC BLADDER
     Route: 065
     Dates: start: 201810

REACTIONS (2)
  - Palpitations [Unknown]
  - Urine output increased [Unknown]
